FAERS Safety Report 6046800-6 (Version None)
Quarter: 2009Q1

REPORT INFORMATION
  Report Type: 
  Country: None (occurrence: None)
  Receive Date: 20090122
  Receipt Date: 20090116
  Transmission Date: 20090719
  Serious: Yes (Hospitalization)
  Sender: FDA-Public Use
  Company Number: A0731304A

PATIENT
  Age: 61 Year
  Sex: Male

DRUGS (8)
  1. AVANDIA [Suspect]
     Dosage: 8MG PER DAY
     Route: 048
     Dates: start: 19950101, end: 20080301
  2. GLUCOPHAGE [Concomitant]
     Dates: start: 19930101
  3. METFORMIN [Concomitant]
     Dates: start: 19930101
  4. STARLIX [Concomitant]
     Dates: start: 20070601
  5. LANTUS [Concomitant]
     Dates: start: 20030101
  6. DIABETA [Concomitant]
     Dates: start: 20020101
  7. FAMOTIDINE [Concomitant]
  8. ASPIRIN [Concomitant]

REACTIONS (3)
  - INJURY [None]
  - MYOCARDIAL INFARCTION [None]
  - PAIN [None]
